FAERS Safety Report 13181227 (Version 1)
Quarter: 2017Q1

REPORT INFORMATION
  Report Type: Spontaneous
  Country: US (occurrence: US)
  Receive Date: 20170202
  Receipt Date: 20170202
  Transmission Date: 20170428
  Serious: No
  Sender: FDA-Public Use
  Company Number: US-SMITH AND NEPHEW, INC-2016SMT00923

PATIENT
  Age: 50 Year
  Sex: Female
  Weight: 90.7 kg

DRUGS (11)
  1. GLUCOPHAGE [Concomitant]
     Active Substance: METFORMIN HYDROCHLORIDE
  2. CLONIDINE. [Concomitant]
     Active Substance: CLONIDINE
  3. PREDNISONE. [Concomitant]
     Active Substance: PREDNISONE
  4. METOPROLOL. [Concomitant]
     Active Substance: METOPROLOL
  5. FLEX PEN [Concomitant]
  6. UNKNOWN CHOLESTEROL MEDICINE [Concomitant]
  7. REGRANEX [Suspect]
     Active Substance: BECAPLERMIN
     Indication: SKIN ULCER
     Dosage: UNK UNK, 1X/DAY
     Route: 061
     Dates: start: 201609, end: 2016
  8. REGRANEX [Suspect]
     Active Substance: BECAPLERMIN
     Dosage: 0.01 %, TWICE
     Route: 061
     Dates: start: 201701, end: 201701
  9. AMITRIPTYLINE [Concomitant]
     Active Substance: AMITRIPTYLINE
  10. NAPROXEN. [Concomitant]
     Active Substance: NAPROXEN
  11. OXYCONTIN [Concomitant]
     Active Substance: OXYCODONE HYDROCHLORIDE

REACTIONS (1)
  - Application site pain [Recovered/Resolved]

NARRATIVE: CASE EVENT DATE: 201609
